FAERS Safety Report 23229232 (Version 3)
Quarter: 2024Q1

REPORT INFORMATION
  Report Type: Spontaneous
  Country: GB (occurrence: GB)
  Receive Date: 20231127
  Receipt Date: 20240109
  Transmission Date: 20240410
  Serious: Yes (Other)
  Sender: FDA-Public Use
  Company Number: GB-NOVOPROD-1141928

PATIENT
  Age: 60 Year
  Sex: Female
  Weight: 80.7 kg

DRUGS (12)
  1. OZEMPIC [Suspect]
     Active Substance: SEMAGLUTIDE
     Indication: Type 2 diabetes mellitus
     Dosage: UNK
     Route: 030
     Dates: start: 20220831, end: 20221111
  2. OZEMPIC [Suspect]
     Active Substance: SEMAGLUTIDE
     Indication: Type 2 diabetes mellitus
     Dosage: 0.25 MG / 0.37 ML
     Route: 030
     Dates: start: 20220708, end: 20220831
  3. RAMIPRIL [Concomitant]
     Active Substance: RAMIPRIL
     Indication: Product used for unknown indication
     Dosage: 5 MG, QOD
     Route: 048
     Dates: start: 20221201
  4. ESOMEPRAZOLE [Concomitant]
     Active Substance: ESOMEPRAZOLE
     Indication: Product used for unknown indication
     Dosage: 20 MG, BID
     Route: 048
     Dates: start: 20221212
  5. AMITRIPTYLINE [Concomitant]
     Active Substance: AMITRIPTYLINE
     Indication: Product used for unknown indication
     Dosage: 10 MG, QOD
     Route: 048
     Dates: start: 20230907
  6. VENLAFAXINE [Concomitant]
     Active Substance: VENLAFAXINE HYDROCHLORIDE
     Indication: Product used for unknown indication
     Dosage: 150 MG, QOD
     Route: 048
     Dates: start: 20230329
  7. NEFOPAM [Concomitant]
     Active Substance: NEFOPAM
     Indication: Product used for unknown indication
     Dosage: 30 MG
     Route: 048
     Dates: start: 20230925
  8. DAPAGLIFLOZIN [Concomitant]
     Active Substance: DAPAGLIFLOZIN
     Indication: Product used for unknown indication
     Dosage: 10 MG
     Route: 048
     Dates: start: 20220610
  9. EZETIMIBE [Concomitant]
     Active Substance: EZETIMIBE
     Indication: Product used for unknown indication
     Dosage: 10 MG
     Route: 048
     Dates: start: 20230615
  10. METFORMIN [Concomitant]
     Active Substance: METFORMIN HYDROCHLORIDE
     Indication: Product used for unknown indication
     Dosage: 500 MG
     Route: 048
     Dates: start: 20220516
  11. ATORVASTATIN [Concomitant]
     Active Substance: ATORVASTATIN
     Indication: Product used for unknown indication
     Dosage: 40 MG
     Route: 048
     Dates: start: 20210223
  12. RAMIPRIL [Concomitant]
     Active Substance: RAMIPRIL
     Indication: Product used for unknown indication
     Dosage: 2.5 MG, QOD
     Route: 048
     Dates: start: 20221110

REACTIONS (11)
  - Coeliac disease [Unknown]
  - Intestinal obstruction [Unknown]
  - Diverticulitis [Unknown]
  - Hernia [Unknown]
  - Bone pain [Unknown]
  - Pain in extremity [Not Recovered/Not Resolved]
  - Musculoskeletal stiffness [Not Recovered/Not Resolved]
  - Nausea [Not Recovered/Not Resolved]
  - Vomiting [Not Recovered/Not Resolved]
  - Eructation [Not Recovered/Not Resolved]
  - Incorrect route of product administration [Unknown]

NARRATIVE: CASE EVENT DATE: 20220708
